FAERS Safety Report 9214689 (Version 1)
Quarter: 2013Q2

REPORT INFORMATION
  Report Type: Spontaneous
  Country: US (occurrence: US)
  Receive Date: 20130405
  Receipt Date: 20130405
  Transmission Date: 20140414
  Serious: No
  Sender: FDA-Public Use
  Company Number: US-009507513-1304USA001848

PATIENT
  Age: 77 Year
  Sex: Female

DRUGS (11)
  1. SINEMET [Suspect]
     Indication: PARKINSONISM
     Dosage: UNK MG, UNK
     Route: 048
     Dates: start: 201105
  2. TRAZODONE HYDROCHLORIDE [Concomitant]
  3. METFORMIN [Concomitant]
  4. LAMOTRIGINE [Concomitant]
  5. OMEPRAZOLE [Concomitant]
  6. ATENOLOL [Concomitant]
  7. IRBESARTAN [Concomitant]
  8. SIMVASTATIN [Concomitant]
     Route: 048
  9. GLIPIZIDE [Concomitant]
  10. ASPIRIN [Concomitant]
  11. AMLODIPINE [Concomitant]

REACTIONS (1)
  - Drug intolerance [Unknown]
